FAERS Safety Report 12425915 (Version 3)
Quarter: 2016Q3

REPORT INFORMATION
  Report Type: Report from Study
  Country: CA (occurrence: CA)
  Receive Date: 20160601
  Receipt Date: 20160912
  Transmission Date: 20161109
  Serious: Yes (Hospitalization)
  Sender: FDA-Public Use
  Company Number: CA-JNJFOC-20160527307

PATIENT
  Age: 61 Year
  Sex: Male
  Weight: 90.27 kg

DRUGS (4)
  1. SIMPONI [Suspect]
     Active Substance: GOLIMUMAB
     Indication: GASTROINTESTINAL HAEMORRHAGE
     Route: 058
     Dates: start: 20160115
  2. MELOXICAM. [Suspect]
     Active Substance: MELOXICAM
     Indication: PRODUCT USED FOR UNKNOWN INDICATION
     Route: 065
  3. METHOTREXATE. [Suspect]
     Active Substance: METHOTREXATE
     Indication: PRODUCT USE ISSUE
     Route: 065
  4. SIMPONI [Suspect]
     Active Substance: GOLIMUMAB
     Indication: RHEUMATOID ARTHRITIS
     Route: 058
     Dates: start: 20160115

REACTIONS (7)
  - Drug ineffective [Unknown]
  - Gastric haemorrhage [Unknown]
  - Off label use [Unknown]
  - Joint swelling [Unknown]
  - Product use issue [Unknown]
  - Hepatic enzyme increased [Unknown]
  - Rectal haemorrhage [Unknown]

NARRATIVE: CASE EVENT DATE: 2016
